FAERS Safety Report 17483913 (Version 2)
Quarter: 2020Q2

REPORT INFORMATION
  Report Type: Spontaneous
  Country: US (occurrence: US)
  Receive Date: 20200302
  Receipt Date: 20200417
  Transmission Date: 20200713
  Serious: No
  Sender: FDA-Public Use
  Company Number: US-ASTRAZENECA-2020SE27500

PATIENT
  Age: 69 Year
  Sex: Female
  Weight: 81.6 kg

DRUGS (12)
  1. FASENRA [Suspect]
     Active Substance: BENRALIZUMAB
     Indication: ASTHMA
     Dosage: 30 ML, EVERY EIGHT WEEKS
     Route: 058
     Dates: start: 201907
  2. IRBESARTAN. [Concomitant]
     Active Substance: IRBESARTAN
     Indication: BLOOD PRESSURE INCREASED
     Route: 048
     Dates: start: 2000
  3. BABY ASPIRIN [Concomitant]
     Active Substance: ASPIRIN
     Indication: ANEURYSM
     Route: 048
     Dates: start: 201709
  4. SYMBICORT [Suspect]
     Active Substance: BUDESONIDE\FORMOTEROL FUMARATE DIHYDRATE
     Indication: ASTHMA
     Dosage: 160/4.5 MCGS TWO PUFF TWO TIMES A DAY
     Route: 055
     Dates: start: 2018
  5. ROSUVASTATIN CALCIUM. [Suspect]
     Active Substance: ROSUVASTATIN CALCIUM
     Indication: BLOOD CHOLESTEROL
     Route: 048
  6. HCTZ [Concomitant]
     Active Substance: HYDROCHLOROTHIAZIDE
     Indication: HYPERTENSION
     Route: 048
     Dates: start: 2000
  7. MONTELUKAST [Concomitant]
     Active Substance: MONTELUKAST SODIUM
     Indication: ASTHMA
     Route: 048
     Dates: start: 2010
  8. SYMBICORT [Suspect]
     Active Substance: BUDESONIDE\FORMOTEROL FUMARATE DIHYDRATE
     Indication: ASTHMA
     Dosage: 80/4.5 MCGS 2 PUFFS TWO TIMES A DAY
     Route: 055
     Dates: start: 201911
  9. ROSUVASTATIN CALCIUM. [Suspect]
     Active Substance: ROSUVASTATIN CALCIUM
     Indication: BLOOD CHOLESTEROL
     Route: 048
     Dates: start: 2016
  10. FASENRA [Suspect]
     Active Substance: BENRALIZUMAB
     Indication: COUGH
     Dosage: 30 ML, EVERY EIGHT WEEKS
     Route: 058
     Dates: start: 201907
  11. NEXIUM 24HR [Suspect]
     Active Substance: ESOMEPRAZOLE MAGNESIUM
     Indication: COUGH
     Route: 048
     Dates: start: 2018, end: 202001
  12. VENTOLIN HFA [Concomitant]
     Active Substance: ALBUTEROL SULFATE
     Indication: INHALATION THERAPY
     Dosage: 90.0UG/INHAL AS REQUIRED
     Route: 055
     Dates: start: 2010

REACTIONS (7)
  - Aneurysm [Unknown]
  - Migraine [Unknown]
  - Eosinophil count increased [Recovered/Resolved]
  - Pain in extremity [Unknown]
  - Headache [Unknown]
  - Arthralgia [Recovered/Resolved]
  - Cough [Recovering/Resolving]

NARRATIVE: CASE EVENT DATE: 2017
